FAERS Safety Report 22135053 (Version 1)
Quarter: 2023Q1

REPORT INFORMATION
  Report Type: Spontaneous
  Country: US (occurrence: US)
  Receive Date: 20230324
  Receipt Date: 20230324
  Transmission Date: 20230417
  Serious: Yes (Life-Threatening, Hospitalization)
  Sender: FDA-Public Use
  Company Number: US-MYLANLABS-2023M1031313

PATIENT
  Age: 54 Year
  Sex: Male

DRUGS (1)
  1. METHOTREXATE [Suspect]
     Active Substance: METHOTREXATE
     Indication: Systemic scleroderma
     Dosage: 20 MILLIGRAM, QW, UNTIL HE REACHED A DOSE OF 20 MG EVERY WEEK
     Route: 065

REACTIONS (5)
  - Cardiotoxicity [Recovering/Resolving]
  - Cardiomyopathy acute [Unknown]
  - Ejection fraction decreased [Recovering/Resolving]
  - Cardiac failure [Unknown]
  - Renal impairment [Unknown]
